FAERS Safety Report 8273885-9 (Version None)
Quarter: 2012Q2

REPORT INFORMATION
  Report Type: 
  Country: None (occurrence: None)
  Receive Date: 20120409
  Receipt Date: 20120326
  Transmission Date: 20120825
  Serious: Yes (Hospitalization, Other)
  Sender: FDA-Public Use
  Company Number: MCA-C-12-011

PATIENT
  Age: 66 Year
  Sex: Female
  Weight: 74.8435 kg

DRUGS (3)
  1. CEFUROXIME AXETIL [Suspect]
     Indication: BRONCHITIS
     Dosage: 250 MG;BID;PO
     Route: 048
     Dates: start: 20120322, end: 20120323
  2. IMDUR [Concomitant]
  3. METOPROLOL TARTRATE [Concomitant]

REACTIONS (3)
  - LOSS OF CONSCIOUSNESS [None]
  - HYPERSENSITIVITY [None]
  - FALL [None]
